FAERS Safety Report 4775802-2 (Version None)
Quarter: 2005Q3

REPORT INFORMATION
  Report Type: 
  Country: None (occurrence: None)
  Receive Date: 20050922
  Receipt Date: 20050913
  Transmission Date: 20060218
  Serious: Yes (Hospitalization, Other)
  Sender: FDA-Public Use
  Company Number: 2005UW13593

PATIENT
  Age: 85 Year
  Sex: Female

DRUGS (1)
  1. PRILOSEC OTC [Suspect]
     Indication: GASTROOESOPHAGEAL REFLUX DISEASE
     Route: 048

REACTIONS (6)
  - DEHYDRATION [None]
  - DYSPHAGIA [None]
  - EYE DISORDER [None]
  - ORAL INTAKE REDUCED [None]
  - SINUS DISORDER [None]
  - URINARY TRACT INFECTION [None]
